FAERS Safety Report 20847171 (Version 2)
Quarter: 2022Q2

REPORT INFORMATION
  Report Type: Spontaneous
  Country: JP (occurrence: JP)
  Receive Date: 20220519
  Receipt Date: 20220520
  Transmission Date: 20220721
  Serious: Yes (Death, Other)
  Sender: FDA-Public Use
  Company Number: JP-NOVARTISPH-NVSJ2022JP090399

PATIENT
  Age: 53 Year
  Sex: Male

DRUGS (1)
  1. KYMRIAH [Suspect]
     Active Substance: TISAGENLECLEUCEL
     Indication: High-grade B-cell lymphoma
     Dosage: UNK
     Route: 041

REACTIONS (5)
  - Death [Fatal]
  - Ventricular fibrillation [Unknown]
  - Cytokine release syndrome [Unknown]
  - Metabolic acidosis [Unknown]
  - Tachypnoea [Unknown]
